FAERS Safety Report 7353394-1 (Version None)
Quarter: 2011Q1

REPORT INFORMATION
  Report Type: 
  Country: None (occurrence: None)
  Receive Date: 20110304
  Receipt Date: 20110217
  Transmission Date: 20110831
  Serious: Yes (Other)
  Sender: FDA-Public Use
  Company Number: 20110161

PATIENT
  Age: 80 Year
  Sex: Female

DRUGS (2)
  1. DEPO-MEDROL [Suspect]
     Indication: NERVE BLOCK
     Dosage: 20 MG INJECTION NOS
  2. LIDOCAINE HYDROCHLORIDE [Suspect]
     Indication: NERVE BLOCK

REACTIONS (3)
  - DIZZINESS [None]
  - VISION BLURRED [None]
  - DYSARTHRIA [None]
